FAERS Safety Report 23894138 (Version 1)
Quarter: 2024Q2

REPORT INFORMATION
  Report Type: Spontaneous
  Country: AU (occurrence: AU)
  Receive Date: 20240524
  Receipt Date: 20240524
  Transmission Date: 20240716
  Serious: Yes (Hospitalization, Other)
  Sender: FDA-Public Use
  Company Number: AU-TGA-0000807179

PATIENT
  Age: 46 Year
  Sex: Female

DRUGS (3)
  1. CARBAMAZEPINE [Suspect]
     Active Substance: CARBAMAZEPINE
     Indication: Trigeminal neuralgia
     Dosage: 100 MG, QD
     Route: 048
     Dates: start: 20240322, end: 20240401
  2. CARBAMAZEPINE [Suspect]
     Active Substance: CARBAMAZEPINE
     Dosage: 200 MG, QD
     Route: 048
     Dates: start: 20240402, end: 20240409
  3. CARBAMAZEPINE [Suspect]
     Active Substance: CARBAMAZEPINE
     Dosage: 100 MG, QD
     Route: 048
     Dates: start: 20240410, end: 20240415

REACTIONS (9)
  - Rash maculo-papular [Recovering/Resolving]
  - Swelling face [Unknown]
  - Lymphadenopathy [Recovered/Resolved]
  - Body temperature fluctuation [Unknown]
  - C-reactive protein increased [Unknown]
  - Dysphagia [Unknown]
  - Lethargy [Unknown]
  - Liver function test increased [Unknown]
  - Swollen tongue [Unknown]

NARRATIVE: CASE EVENT DATE: 20240322
